FAERS Safety Report 4656167-3 (Version None)
Quarter: 2005Q2

REPORT INFORMATION
  Report Type: 
  Country: None (occurrence: None)
  Receive Date: 20050509
  Receipt Date: 20050503
  Transmission Date: 20051028
  Serious: Yes (Other)
  Sender: FDA-Public Use
  Company Number: GB-ROCHE-403869

PATIENT
  Age: 26 Year
  Sex: Female
  Weight: 91.5 kg

DRUGS (3)
  1. ORLISTAT [Suspect]
     Indication: OBESITY
     Dosage: DURATION WAS REPORTED AS 6.03 MONTHS
     Route: 048
     Dates: start: 20041020, end: 20050419
  2. GAVISCON [Concomitant]
     Route: 048
     Dates: start: 20050208
  3. LEVONORGESTREL AND ETHINYL ESTRADIOL [Concomitant]
     Route: 048
     Dates: start: 20050115

REACTIONS (2)
  - LICHENOID KERATOSIS [None]
  - RASH ERYTHEMATOUS [None]
